FAERS Safety Report 21199227 (Version 2)
Quarter: 2022Q3

REPORT INFORMATION
  Report Type: Spontaneous
  Country: AU (occurrence: AU)
  Receive Date: 20220811
  Receipt Date: 20220919
  Transmission Date: 20221027
  Serious: Yes (Other)
  Sender: FDA-Public Use
  Company Number: AU-NOVARTISPH-NVSC2022AU176157

PATIENT
  Age: 36 Year
  Sex: Female
  Weight: 71 kg

DRUGS (1)
  1. RITALIN [Suspect]
     Active Substance: METHYLPHENIDATE HYDROCHLORIDE
     Indication: Attention deficit hyperactivity disorder
     Dosage: 1.5 DOSAGE FORM (1.5 X 10 MG TABLETS, DIFFERENT DOSAGE EACH DAY, PRESCRIBED FOR 2 TABS TDS)
     Route: 048
     Dates: start: 20220801, end: 20220803

REACTIONS (3)
  - Malaise [Recovered/Resolved]
  - Feeling jittery [Recovered/Resolved]
  - Anxiety [Recovered/Resolved]

NARRATIVE: CASE EVENT DATE: 20220801
